FAERS Safety Report 25951869 (Version 1)
Quarter: 2025Q4

REPORT INFORMATION
  Report Type: Spontaneous
  Country: US (occurrence: US)
  Receive Date: 20251023
  Receipt Date: 20251023
  Transmission Date: 20260118
  Serious: No
  Sender: Kenvue
  Company Number: US-KENVUE-20250916328

PATIENT

DRUGS (4)
  1. TYLENOL [Suspect]
     Active Substance: ACETAMINOPHEN
     Indication: Migraine
     Route: 065
  2. TYLENOL [Suspect]
     Active Substance: ACETAMINOPHEN
     Indication: Back pain
  3. TYLENOL [Suspect]
     Active Substance: ACETAMINOPHEN
     Indication: Injury
  4. TYLENOL [Suspect]
     Active Substance: ACETAMINOPHEN
     Indication: Herpes zoster

REACTIONS (2)
  - Product use in unapproved indication [Unknown]
  - Therapeutic response unexpected [Unknown]
